FAERS Safety Report 16745259 (Version 1)
Quarter: 2019Q3

REPORT INFORMATION
  Report Type: Spontaneous
  Country: US (occurrence: US)
  Receive Date: 20190827
  Receipt Date: 20190827
  Transmission Date: 20191005
  Serious: Yes (Other)
  Sender: FDA-Public Use
  Company Number: US-BAYER-2019-153592

PATIENT
  Age: 61 Year
  Sex: Male
  Weight: 84 kg

DRUGS (2)
  1. PLAVIX [Concomitant]
     Active Substance: CLOPIDOGREL BISULFATE
  2. BAYER LOW DOSE [Suspect]
     Active Substance: ASPIRIN
     Dosage: 1 DF
     Route: 048
     Dates: start: 20190819

REACTIONS (2)
  - Product package associated injury [Recovering/Resolving]
  - Haemorrhage [Recovered/Resolved]

NARRATIVE: CASE EVENT DATE: 20190819
